FAERS Safety Report 5948822-X (Version None)
Quarter: 2008Q4

REPORT INFORMATION
  Report Type: 
  Country: None (occurrence: None)
  Receive Date: 20081021
  Receipt Date: 20080505
  Transmission Date: 20090506
  Serious: Yes (Other)
  Sender: FDA-Public Use
  Company Number: HQWYE202631AUG06

PATIENT
  Age: 58 Year
  Sex: Female

DRUGS (7)
  1. PREMARIN [Suspect]
     Indication: HORMONE REPLACEMENT THERAPY
  2. CYCRIN [Suspect]
  3. ESTRACE [Suspect]
  4. ESTRADIOL [Suspect]
  5. MEDROXYPROGESTERONE [Suspect]
  6. PREFEST [Suspect]
  7. PROVERA [Suspect]

REACTIONS (1)
  - BREAST CANCER [None]
